FAERS Safety Report 22054836 (Version 2)
Quarter: 2023Q1

REPORT INFORMATION
  Report Type: Spontaneous
  Country: FI (occurrence: FI)
  Receive Date: 20230302
  Receipt Date: 20230314
  Transmission Date: 20230417
  Serious: Yes (Hospitalization)
  Sender: FDA-Public Use
  Company Number: FI-TEVA-2023-FI-2860772

PATIENT
  Age: 26 Year
  Sex: Male

DRUGS (10)
  1. DISULFIRAM [Interacting]
     Active Substance: DISULFIRAM
     Indication: Alcohol use disorder
     Dosage: 200 MILLIGRAM DAILY;
     Route: 065
     Dates: start: 202009, end: 202011
  2. OLANZAPINE [Suspect]
     Active Substance: OLANZAPINE
     Indication: Schizophrenia
     Dosage: 10-20 MG
     Route: 065
  3. CLOZAPINE [Interacting]
     Active Substance: CLOZAPINE
     Indication: Schizophrenia
     Dosage: 400 MILLIGRAM DAILY;
     Route: 065
     Dates: start: 202007
  4. CLOZAPINE [Interacting]
     Active Substance: CLOZAPINE
     Dosage: 650 MILLIGRAM DAILY;
     Route: 065
  5. CLOZAPINE [Interacting]
     Active Substance: CLOZAPINE
     Dosage: 600 MILLIGRAM DAILY;
     Route: 065
  6. CLOZAPINE [Interacting]
     Active Substance: CLOZAPINE
     Route: 065
  7. CHLORPROTHIXENE HYDROCHLORIDE [Suspect]
     Active Substance: CHLORPROTHIXENE HYDROCHLORIDE
     Indication: Schizophrenia
     Dosage: 25-100 MG
     Route: 065
  8. ZUCLOPENTHIXOL [Suspect]
     Active Substance: ZUCLOPENTHIXOL
     Indication: Schizophrenia
     Dosage: 50 MILLIGRAM DAILY;
     Route: 030
  9. SCOPOLAMINE [Concomitant]
     Active Substance: SCOPOLAMINE
     Indication: Salivary hypersecretion
     Route: 062
  10. BUPRENORPHINE [Concomitant]
     Active Substance: BUPRENORPHINE
     Indication: Product used for unknown indication
     Dosage: LONG-ACTING INJECTABLE
     Route: 065

REACTIONS (6)
  - Vomiting [Unknown]
  - Headache [Unknown]
  - Oropharyngeal pain [Unknown]
  - Neuroleptic malignant syndrome [Recovered/Resolved]
  - Antipsychotic drug level increased [Recovered/Resolved]
  - Drug interaction [Unknown]
